FAERS Safety Report 24526905 (Version 2)
Quarter: 2024Q4

REPORT INFORMATION
  Report Type: Report from Study
  Country: CA (occurrence: CA)
  Receive Date: 20241021
  Receipt Date: 20241103
  Transmission Date: 20250115
  Serious: Yes (Other)
  Sender: APOTEX
  Company Number: CA-APOTEX-2024AP011856

PATIENT
  Age: 68 Year
  Sex: Female

DRUGS (2)
  1. LENALIDOMIDE [Suspect]
     Active Substance: LENALIDOMIDE
     Indication: Follicular lymphoma recurrent
     Dosage: 10 MILLIGRAM, QD (TAKE 1 CAPSULE (10MG TOTAL) BY MOUTH ONCE DAILY FOR 21 DAYS OUT OF 28 DAY CYCLE)
     Route: 048
     Dates: start: 20240917, end: 20241003
  2. LENALIDOMIDE [Suspect]
     Active Substance: LENALIDOMIDE
     Indication: Plasma cell myeloma

REACTIONS (2)
  - Malignant neoplasm progression [Unknown]
  - Off label use [Unknown]

NARRATIVE: CASE EVENT DATE: 20240917
